FAERS Safety Report 13801815 (Version 1)
Quarter: 2017Q3

REPORT INFORMATION
  Report Type: Spontaneous
  Country: US (occurrence: US)
  Receive Date: 20170727
  Receipt Date: 20170727
  Transmission Date: 20171127
  Serious: Yes (Hospitalization, Other)
  Sender: FDA-Public Use
  Company Number: US-BEH-2017082273

PATIENT
  Age: 82 Year
  Sex: Male
  Weight: 98.41 kg

DRUGS (30)
  1. PANTOPRAZOLE [Concomitant]
     Active Substance: PANTOPRAZOLE
  2. SIMVASTATIN. [Concomitant]
     Active Substance: SIMVASTATIN
  3. LIDOCAINE. [Concomitant]
     Active Substance: LIDOCAINE
  4. TRADJENTA [Concomitant]
     Active Substance: LINAGLIPTIN
  5. MULTIVITAMINS [Concomitant]
     Active Substance: VITAMINS
  6. MECLIZINE [Concomitant]
     Active Substance: MECLIZINE HYDROCHLORIDE
  7. PERCOCET                           /00446701/ [Concomitant]
     Active Substance: ACETAMINOPHEN\OXYCODONE HYDROCHLORIDE\OXYCODONE TEREPHTHALATE
  8. TAMSULOSIN [Concomitant]
     Active Substance: TAMSULOSIN
  9. PULMICORT TURBUHALER [Concomitant]
     Active Substance: BUDESONIDE
  10. HIZENTRA [Suspect]
     Active Substance: HUMAN IMMUNOGLOBULIN G
     Indication: IMMUNODEFICIENCY COMMON VARIABLE
     Dosage: 10 G, QW
     Route: 058
     Dates: start: 20160919
  11. EPIPEN [Concomitant]
     Active Substance: EPINEPHRINE
  12. FENOFIBRIC ACID. [Concomitant]
     Active Substance: FENOFIBRIC ACID
  13. ZOCOR [Concomitant]
     Active Substance: SIMVASTATIN
  14. LOPRESSOR [Concomitant]
     Active Substance: METOPROLOL TARTRATE
  15. BROVANA [Concomitant]
     Active Substance: ARFORMOTEROL TARTRATE
  16. ACETAMINOPHEN. [Concomitant]
     Active Substance: ACETAMINOPHEN
  17. DIPHENHYDRAMINE. [Concomitant]
     Active Substance: DIPHENHYDRAMINE
  18. TRILIPIX [Concomitant]
     Active Substance: FENOFIBRIC ACID
  19. VALIUM [Concomitant]
     Active Substance: DIAZEPAM
  20. GLIPIZIDE. [Concomitant]
     Active Substance: GLIPIZIDE
  21. PREDNISONE. [Concomitant]
     Active Substance: PREDNISONE
  22. HIZENTRA [Suspect]
     Active Substance: HUMAN IMMUNOGLOBULIN G
     Dosage: UNK
     Route: 058
  23. MONTELUKAST [Concomitant]
     Active Substance: MONTELUKAST SODIUM
  24. SINGULAIR [Concomitant]
     Active Substance: MONTELUKAST SODIUM
  25. ASPIRIN. [Concomitant]
     Active Substance: ASPIRIN
  26. AMLODIPINE [Concomitant]
     Active Substance: AMLODIPINE BESYLATE
  27. SYNTHROID [Concomitant]
     Active Substance: LEVOTHYROXINE SODIUM
  28. ALBUTEROL                          /00139501/ [Concomitant]
     Active Substance: ALBUTEROL
  29. GABAPENTIN. [Concomitant]
     Active Substance: GABAPENTIN
  30. CENTRUM SILVER                     /02363801/ [Concomitant]
     Active Substance: MINERALS\VITAMINS

REACTIONS (1)
  - Coronary arterial stent insertion [Recovered/Resolved]

NARRATIVE: CASE EVENT DATE: 20170710
